FAERS Safety Report 7198413-0 (Version None)
Quarter: 2010Q4

REPORT INFORMATION
  Report Type: 
  Country: None (occurrence: None)
  Receive Date: 20101227
  Receipt Date: 20101216
  Transmission Date: 20110411
  Serious: Yes (Other)
  Sender: FDA-Public Use
  Company Number: JP-JNJFOC-20101107571

PATIENT
  Age: 34 Year
  Sex: Female

DRUGS (4)
  1. DUROTEP MT [Suspect]
     Indication: METASTASES TO BONE
     Dosage: MAXIMUM DOSE OF 200 MCG/HR
     Route: 062
  2. DUROTEP MT [Suspect]
     Route: 062
  3. DUROTEP MT [Suspect]
     Route: 062
  4. SORAFENIB TOSILATE [Concomitant]
     Route: 065

REACTIONS (5)
  - ABDOMINAL DISTENSION [None]
  - DECREASED APPETITE [None]
  - DRUG INEFFECTIVE [None]
  - HYPOPHAGIA [None]
  - NAUSEA [None]
